FAERS Safety Report 5008445-6 (Version None)
Quarter: 2006Q2

REPORT INFORMATION
  Report Type: 
  Country: None (occurrence: None)
  Receive Date: 20060522
  Receipt Date: 20060522
  Transmission Date: 20061013
  Serious: Yes (Hospitalization)
  Sender: FDA-Public Use
  Company Number: None

PATIENT
  Sex: Female
  Weight: 76.7033 kg

DRUGS (24)
  1. BEVACIZUMAB, 5MG/KG, GENENTECH [Suspect]
     Indication: ENDOCRINE PANCREATIC DISORDER
     Dosage: 375 MG QS, Q 2WKS, IV
     Route: 042
     Dates: start: 20060102, end: 20060428
  2. BEVACIZUMAB, 5MG/KG, GENENTECH [Suspect]
     Indication: NEOPLASM
     Dosage: 375 MG QS, Q 2WKS, IV
     Route: 042
     Dates: start: 20060102, end: 20060428
  3. DEXAMETHASONE TAB [Suspect]
     Indication: ENDOCRINE PANCREATIC DISORDER
     Dosage: 10 MG Q-2 WKS, IV
     Route: 042
     Dates: start: 20060102, end: 20060428
  4. DEXAMETHASONE TAB [Suspect]
     Indication: NEOPLASM
     Dosage: 10 MG Q-2 WKS, IV
     Route: 042
     Dates: start: 20060102, end: 20060428
  5. ALOXI [Suspect]
     Indication: ENDOCRINE PANCREATIC DISORDER
     Dosage: 0.25 MG Q-2WKS IV
     Route: 042
     Dates: start: 20060102, end: 20060428
  6. ALOXI [Suspect]
     Indication: NEOPLASM
     Dosage: 0.25 MG Q-2WKS IV
     Route: 042
     Dates: start: 20060102, end: 20060428
  7. OXALIPLATIN, 65 MG/M2 SANOFI-SYNTHELABO [Suspect]
     Indication: ENDOCRINE PANCREATIC DISORDER
     Dosage: 125 MG Q2 WKS, IV
     Route: 042
     Dates: start: 20060102, end: 20060428
  8. OXALIPLATIN, 65 MG/M2 SANOFI-SYNTHELABO [Suspect]
     Indication: NEOPLASM
     Dosage: 125 MG Q2 WKS, IV
     Route: 042
     Dates: start: 20060102, end: 20060428
  9. LEUCOVORIN CALCIUM [Suspect]
     Indication: ENDOCRINE PANCREATIC DISORDER
     Dosage: 390 MG Q2 WKS IV
     Route: 042
     Dates: start: 20060102, end: 20060428
  10. LEUCOVORIN CALCIUM [Suspect]
     Indication: NEOPLASM
     Dosage: 390 MG Q2 WKS IV
     Route: 042
     Dates: start: 20060102, end: 20060428
  11. FLUOROURACIL [Suspect]
     Indication: ENDOCRINE PANCREATIC DISORDER
     Dosage: 620 + 1870 MG Q 2WKS IV
     Route: 042
     Dates: start: 20060102, end: 20060428
  12. FLUOROURACIL [Suspect]
     Indication: NEOPLASM
     Dosage: 620 + 1870 MG Q 2WKS IV
     Route: 042
     Dates: start: 20060102, end: 20060428
  13. CELEXA [Concomitant]
  14. OXYCODONE [Concomitant]
  15. VICODIN [Concomitant]
  16. PANCREASE [Concomitant]
  17. COMPAZINE [Concomitant]
  18. ATIVAN [Concomitant]
  19. KYTRIL [Concomitant]
  20. HYDROCHLOROTHIAZIDE [Concomitant]
  21. NORVASC [Concomitant]
  22. COLACE [Concomitant]
  23. PROTONIX [Concomitant]
  24. CARAFATE [Concomitant]

REACTIONS (4)
  - AORTIC DISORDER [None]
  - HAEMATEMESIS [None]
  - HAEMATOMA [None]
  - PERFORATED ULCER [None]
